FAERS Safety Report 4639389-7 (Version None)
Quarter: 2005Q2

REPORT INFORMATION
  Report Type: 
  Country: None (occurrence: None)
  Receive Date: 20050418
  Receipt Date: 20050411
  Transmission Date: 20051028
  Serious: Yes (Death)
  Sender: FDA-Public Use
  Company Number: 163-20785-04080052

PATIENT
  Age: 77 Year
  Sex: Female

DRUGS (1)
  1. THALOMID [Suspect]
     Indication: MULTIPLE MYELOMA
     Dosage: 50-100 MG, DAILY, ORAL
     Route: 048
     Dates: start: 20030917, end: 20040512

REACTIONS (4)
  - MALNUTRITION [None]
  - PANCREATITIS ACUTE [None]
  - PERITONITIS [None]
  - SHOCK [None]
